FAERS Safety Report 22914170 (Version 4)
Quarter: 2023Q4

REPORT INFORMATION
  Report Type: Report from Study
  Country: US (occurrence: US)
  Receive Date: 20230906
  Receipt Date: 20231215
  Transmission Date: 20240109
  Serious: Yes (Other)
  Sender: FDA-Public Use
  Company Number: US-UCBSA-2023037070

PATIENT
  Sex: Male

DRUGS (2)
  1. CERTOLIZUMAB PEGOL [Suspect]
     Active Substance: CERTOLIZUMAB PEGOL
     Indication: Rheumatoid arthritis
     Dosage: 400 MILLIGRAM, EV 4 WEEKS
     Route: 058
     Dates: start: 20230509, end: 2023
  2. CERTOLIZUMAB PEGOL [Suspect]
     Active Substance: CERTOLIZUMAB PEGOL
     Dosage: UNK
     Route: 058
     Dates: start: 202311

REACTIONS (11)
  - Weight decreased [Recovered/Resolved]
  - Arthralgia [Recovered/Resolved]
  - Hunger [Unknown]
  - Dry mouth [Recovered/Resolved]
  - Thirst [Recovering/Resolving]
  - Hypogeusia [Recovered/Resolved]
  - Pollakiuria [Recovering/Resolving]
  - Decreased appetite [Recovered/Resolved]
  - Nasopharyngitis [Not Recovered/Not Resolved]
  - COVID-19 [Recovered/Resolved]
  - Illness [Unknown]

NARRATIVE: CASE EVENT DATE: 20230101
